FAERS Safety Report 9171037 (Version 3)
Quarter: 2014Q1

REPORT INFORMATION
  Report Type: Report from Study
  Country: JP (occurrence: JP)
  Receive Date: 20130319
  Receipt Date: 20140210
  Transmission Date: 20141002
  Serious: Yes (Hospitalization)
  Sender: FDA-Public Use
  Company Number: JP-PFIZER INC-2012148999

PATIENT
  Age: 46 Year
  Sex: Male
  Weight: 68 kg

DRUGS (7)
  1. XALKORI [Suspect]
     Indication: NON-SMALL CELL LUNG CANCER
     Dosage: 250 MG, 2X/DAY
     Route: 048
     Dates: start: 20120606
  2. DUROTEP [Concomitant]
     Dosage: 8.4 MG, 1X/DAY
     Route: 062
  3. TAKEPRON [Concomitant]
     Dosage: 15 MG, 1X/DAY
     Route: 048
  4. PURSENNID [Concomitant]
     Dosage: 12 MG, 1X/DAY
     Route: 048
  5. MAG-LAX [Concomitant]
     Dosage: 330 MG, 3X/DAY
     Route: 048
  6. GANATON [Concomitant]
     Dosage: 50 MG, 3X/DAY
     Route: 048
  7. ALOSENN (SENNA LEAF AND SENNA POD) [Concomitant]
     Dosage: 0.5 G, 1X/DAY
     Route: 048

REACTIONS (1)
  - Hyperkalaemia [Recovering/Resolving]
